FAERS Safety Report 25344005 (Version 2)
Quarter: 2025Q2

REPORT INFORMATION
  Report Type: Spontaneous
  Country: NL (occurrence: NL)
  Receive Date: 20250521
  Receipt Date: 20250529
  Transmission Date: 20250717
  Serious: Yes (Other)
  Sender: MERCK SHARP & DOHME LLC
  Company Number: NL-MSNLABS-2025MSNLIT00996

PATIENT
  Sex: Male

DRUGS (2)
  1. SUGAMMADEX [Suspect]
     Active Substance: SUGAMMADEX
     Dates: start: 202403, end: 202403
  2. ROCURONIUM [Suspect]
     Active Substance: ROCURONIUM BROMIDE
     Indication: General anaesthesia
     Dates: start: 202403, end: 202403

REACTIONS (1)
  - Anaphylactic reaction [Recovered/Resolved]

NARRATIVE: CASE EVENT DATE: 20240301
